FAERS Safety Report 25602020 (Version 2)
Quarter: 2025Q3

REPORT INFORMATION
  Report Type: Spontaneous
  Country: US (occurrence: US)
  Receive Date: 20250724
  Receipt Date: 20250730
  Transmission Date: 20251021
  Serious: No
  Sender: AMGEN
  Company Number: US-AMGEN-USASP2025145568

PATIENT
  Sex: Female

DRUGS (9)
  1. OTEZLA [Suspect]
     Active Substance: APREMILAST
     Indication: Psoriatic arthropathy
     Dosage: 30 MILLIGRAM, BID
     Route: 048
  2. NALTREXONE HYDROCHLORIDE [Concomitant]
     Active Substance: NALTREXONE HYDROCHLORIDE
  3. LUTEIN [Concomitant]
     Active Substance: LUTEIN
  4. ZEAXANTHIN [Concomitant]
     Active Substance: ZEAXANTHIN
  5. ZINC [Concomitant]
     Active Substance: ZINC
  6. COPPER GLUCONATE [Concomitant]
     Active Substance: COPPER GLUCONATE
  7. Triple omega 3 6 9 [Concomitant]
  8. PYRIDOXINE [Concomitant]
     Active Substance: PYRIDOXINE
  9. VITAMIN E [Concomitant]
     Active Substance: .ALPHA.-TOCOPHEROL

REACTIONS (1)
  - Diarrhoea [Unknown]
